FAERS Safety Report 6103529-3 (Version None)
Quarter: 2009Q1

REPORT INFORMATION
  Report Type: 
  Country: None (occurrence: None)
  Receive Date: 20090227
  Receipt Date: 20080325
  Transmission Date: 20090719
  Serious: Yes (Death)
  Sender: FDA-Public Use
  Company Number: 2008EU001321

PATIENT
  Sex: Female
  Weight: 140 kg

DRUGS (3)
  1. SOLIFENACIN TABLET(SOLIFENACIN) TABLET, UNKNOWN [Suspect]
     Dosage: 5 MG, ORAL
     Route: 048
  2. CANDESARTAN CILEXETIL [Concomitant]
  3. CARBAMAZEPINE [Concomitant]

REACTIONS (1)
  - DEATH [None]
